FAERS Safety Report 22155108 (Version 1)
Quarter: 2023Q1

REPORT INFORMATION
  Report Type: Spontaneous
  Country: US (occurrence: None)
  Receive Date: 20230329
  Receipt Date: 20230329
  Transmission Date: 20230418
  Serious: Yes (Other)
  Sender: FDA-Public Use
  Company Number: None

PATIENT
  Age: 62 Year
  Sex: Female
  Weight: 52.65 kg

DRUGS (1)
  1. HIZENTRA [Suspect]
     Active Substance: HUMAN IMMUNOGLOBULIN G
     Indication: Immunodeficiency common variable
     Dosage: FREQUENCY : DAILY;?
     Route: 058
     Dates: start: 20230329, end: 20230329

REACTIONS (4)
  - Product quality issue [None]
  - Infusion site erythema [None]
  - Infusion site pain [None]
  - Infusion site irritation [None]

NARRATIVE: CASE EVENT DATE: 20230329
